FAERS Safety Report 9053283 (Version 2)
Quarter: 2013Q2

REPORT INFORMATION
  Report Type: Spontaneous
  Country: CA (occurrence: CA)
  Receive Date: 20130207
  Receipt Date: 20130409
  Transmission Date: 20140414
  Serious: Yes (Hospitalization)
  Sender: FDA-Public Use
  Company Number: CA-B.I. PHARMACEUTICALS,INC./RIDGEFIELD-2013-CN-00183CN

PATIENT
  Age: 63 Year
  Sex: Female

DRUGS (5)
  1. TRAJENTA [Suspect]
     Indication: TYPE 2 DIABETES MELLITUS
     Dates: start: 20120918, end: 20121215
  2. METFORMIN [Concomitant]
  3. COVERSYL [Concomitant]
  4. LIPITOR [Concomitant]
  5. EZETROL [Concomitant]

REACTIONS (1)
  - Pancreatitis [Recovered/Resolved]
